FAERS Safety Report 4433522-8 (Version None)
Quarter: 2004Q3

REPORT INFORMATION
  Report Type: 
  Country: None (occurrence: None)
  Receive Date: 20040826
  Receipt Date: 20040820
  Transmission Date: 20050211
  Serious: Yes (Life-Threatening, Hospitalization)
  Sender: FDA-Public Use
  Company Number: 200413133FR

PATIENT
  Age: 51 Year
  Sex: Male

DRUGS (4)
  1. GARDENALE [Suspect]
     Indication: CLONIC CONVULSION
     Route: 048
     Dates: start: 20040614, end: 20040618
  2. CLAFORAN [Suspect]
     Indication: PNEUMONIA
     Route: 042
     Dates: start: 20040525, end: 20040619
  3. RIFADIN [Suspect]
     Indication: MENINGITIS
     Route: 042
     Dates: start: 20040525, end: 20040619
  4. VANCOCIN HCL [Suspect]
     Indication: ENCEPHALITIS
     Route: 042
     Dates: start: 20040525, end: 20040619

REACTIONS (7)
  - AGRANULOCYTOSIS [None]
  - BONE MARROW MYELOGRAM ABNORMAL [None]
  - HAEMOGLOBIN DECREASED [None]
  - NEUTROPHIL COUNT INCREASED [None]
  - PLATELET COUNT INCREASED [None]
  - PROMYELOCYTE COUNT INCREASED [None]
  - WHITE BLOOD CELL COUNT INCREASED [None]
